FAERS Safety Report 24393390 (Version 1)
Quarter: 2024Q4

REPORT INFORMATION
  Report Type: Spontaneous
  Country: US (occurrence: None)
  Receive Date: 20241003
  Receipt Date: 20241003
  Transmission Date: 20250115
  Serious: Yes (Hospitalization)
  Sender: Public
  Company Number: None

PATIENT
  Sex: Female

DRUGS (4)
  1. GAMMAPLEX [Suspect]
     Active Substance: HUMAN IMMUNOGLOBULIN G
     Indication: Myasthenia gravis
     Route: 042
     Dates: start: 202408
  2. SODIUM CHLOR [Concomitant]
  3. HEPARIN FLUSH [Concomitant]
  4. EPlNEPHRINE [Concomitant]

REACTIONS (1)
  - Hip fracture [None]
